FAERS Safety Report 5130719-9 (Version None)
Quarter: 2006Q4

REPORT INFORMATION
  Report Type: 
  Country: None (occurrence: None)
  Receive Date: 20061018
  Receipt Date: 20061018
  Transmission Date: 20070319
  Serious: Yes (Life-Threatening, Hospitalization)
  Sender: FDA-Public Use
  Company Number: None

PATIENT
  Age: 78 Year
  Sex: Male
  Weight: 104.4 kg

DRUGS (16)
  1. WARFARIN SODIUM [Suspect]
     Indication: DEEP VEIN THROMBOSIS
     Dosage: 7.5 MG PO DAILY
     Route: 048
  2. WARFARIN SODIUM [Suspect]
     Indication: PULMONARY EMBOLISM
     Dosage: 7.5 MG PO DAILY
     Route: 048
  3. TRAMADOL [Concomitant]
  4. RANITIDINE [Concomitant]
  5. FLOMAX [Concomitant]
  6. ZOCOR [Concomitant]
  7. ASPIRIN [Concomitant]
  8. LASIX [Concomitant]
  9. POTASSIUM CHLORIDE [Concomitant]
  10. METOPROLOL [Concomitant]
  11. NEURONTIN [Concomitant]
  12. REMERON [Concomitant]
  13. FLUOXETINE [Concomitant]
  14. HYDRALAZINE HCL [Concomitant]
  15. ISOSORBIDE [Concomitant]
  16. ALLOPURINOL [Concomitant]

REACTIONS (4)
  - ABNORMAL FAECES [None]
  - RECTAL HAEMORRHAGE [None]
  - REFUSAL OF TREATMENT BY RELATIVE [None]
  - THROMBOSIS [None]
